FAERS Safety Report 18865211 (Version 1)
Quarter: 2021Q1

REPORT INFORMATION
  Report Type: Spontaneous
  Country: US (occurrence: US)
  Receive Date: 20210208
  Receipt Date: 20210208
  Transmission Date: 20210420
  Serious: Yes (Hospitalization)
  Sender: FDA-Public Use
  Company Number: None

PATIENT
  Sex: Female

DRUGS (25)
  1. GLATIRAMER , 40MG/ML SYR [Suspect]
     Active Substance: GLATIRAMER
     Indication: MULTIPLE SCLEROSIS
     Route: 058
     Dates: start: 20201004, end: 20210204
  2. CLONIDINE. [Concomitant]
     Active Substance: CLONIDINE
  3. CYMBALTA [Concomitant]
     Active Substance: DULOXETINE HYDROCHLORIDE
  4. HYDROXYZ HCL [Concomitant]
     Active Substance: HYDROXYZINE HYDROCHLORIDE
  5. VASCEPA [Concomitant]
     Active Substance: ICOSAPENT ETHYL
     Indication: MULTIPLE SCLEROSIS
     Route: 058
     Dates: start: 20201004, end: 20210204
  6. OXCARBAZEPIN [Concomitant]
     Active Substance: OXCARBAZEPINE
  7. AIMOVIG [Concomitant]
     Active Substance: ERENUMAB-AOOE
  8. ONDANSETRON [Concomitant]
     Active Substance: ONDANSETRON
  9. PROCHLORPER [Concomitant]
  10. ACYCLOVIR. [Concomitant]
     Active Substance: ACYCLOVIR
  11. FLUOCINONIDE. [Concomitant]
     Active Substance: FLUOCINONIDE
  12. PREGABALIN. [Concomitant]
     Active Substance: PREGABALIN
  13. BUPRENORPHIN DIS [Concomitant]
  14. KEFLEX [Concomitant]
     Active Substance: CEPHALEXIN
  15. SINGULAIR [Concomitant]
     Active Substance: MONTELUKAST SODIUM
  16. TIZANIDINE. [Concomitant]
     Active Substance: TIZANIDINE
  17. DEPO?PROVERA [Concomitant]
     Active Substance: MEDROXYPROGESTERONE ACETATE
  18. FIORICET [Concomitant]
     Active Substance: ACETAMINOPHEN\BUTALBITAL\CAFFEINE
  19. HYDROCHLOROT [Concomitant]
     Active Substance: HYDROCHLOROTHIAZIDE
  20. LIPITOR [Concomitant]
     Active Substance: ATORVASTATIN CALCIUM
  21. OMEPRAZOLE. [Concomitant]
     Active Substance: OMEPRAZOLE
  22. POTASSIUM GL ER [Concomitant]
  23. ALBUTEROL AER [Concomitant]
     Active Substance: ALBUTEROL
  24. FLOVENT HFA [Concomitant]
     Active Substance: FLUTICASONE PROPIONATE
  25. MINOCYCLINE [Concomitant]
     Active Substance: MINOCYCLINE HYDROCHLORIDE

REACTIONS (6)
  - Headache [None]
  - Pain [None]
  - Nausea [None]
  - Peripheral swelling [None]
  - Cognitive disorder [None]
  - Swelling [None]
